FAERS Safety Report 10241470 (Version 2)
Quarter: 2014Q2

REPORT INFORMATION
  Report Type: Report from Study
  Country: CA (occurrence: CA)
  Receive Date: 20140617
  Receipt Date: 20140617
  Transmission Date: 20141212
  Serious: Yes (Hospitalization)
  Sender: FDA-Public Use
  Company Number: PHHY2013CA071794

PATIENT
  Age: 70 Year
  Sex: Female

DRUGS (4)
  1. ACLASTA [Suspect]
     Indication: OSTEOPOROSIS
     Dosage: 5 MG, UNK
     Route: 042
     Dates: start: 20130625
  2. VITAMIN D [Concomitant]
     Dosage: 2000 IU, DAILY
     Route: 048
  3. CALCIUM [Concomitant]
     Dosage: UNK
  4. ROSIC [Concomitant]
     Dosage: 20 MG, BID
     Route: 048

REACTIONS (6)
  - Acute myocardial infarction [Unknown]
  - Chest pain [Unknown]
  - Back pain [Unknown]
  - Pain in jaw [Unknown]
  - Insomnia [Unknown]
  - Dyspepsia [Unknown]
